FAERS Safety Report 6914759-2 (Version None)
Quarter: 2010Q3

REPORT INFORMATION
  Report Type: 
  Country: None (occurrence: None)
  Receive Date: 20100809
  Receipt Date: 20100728
  Transmission Date: 20110219
  Serious: Yes (Disabling)
  Sender: FDA-Public Use
  Company Number: GB-ELI_LILLY_AND_COMPANY-GB201007007115

PATIENT
  Age: 60 Year
  Sex: Male
  Weight: 79 kg

DRUGS (5)
  1. BYETTA [Suspect]
     Indication: DIABETES MELLITUS
     Dosage: 10 MG, 2/D
     Route: 058
     Dates: start: 20090101, end: 20100601
  2. METFORMIN HCL [Concomitant]
     Indication: DIABETES MELLITUS
     Dosage: 3 G, UNKNOWN
     Route: 048
     Dates: start: 20041101
  3. SILDENAFIL CITRATE [Concomitant]
     Indication: ERECTILE DYSFUNCTION
     Dosage: 100 MG, UNKNOWN
     Route: 048
     Dates: start: 20090526
  4. SIMVASTATIN [Concomitant]
     Indication: DYSLIPIDAEMIA
     Dosage: 20 MG, UNKNOWN
     Route: 048
     Dates: start: 20080108
  5. VALSARTAN [Concomitant]
     Indication: HYPERTENSION
     Dosage: 80 MG, UNKNOWN
     Route: 048
     Dates: start: 20031009

REACTIONS (6)
  - ANXIETY [None]
  - BALANCE DISORDER [None]
  - DISORIENTATION [None]
  - DIZZINESS [None]
  - FATIGUE [None]
  - GAIT DISTURBANCE [None]
